FAERS Safety Report 21626799 (Version 1)
Quarter: 2022Q4

REPORT INFORMATION
  Report Type: Report from Study
  Country: US (occurrence: US)
  Receive Date: 20221122
  Receipt Date: 20221122
  Transmission Date: 20230113
  Serious: No
  Sender: FDA-Public Use
  Company Number: US-ABBVIE-22K-163-4525674-00

PATIENT
  Age: 63 Year
  Sex: Female

DRUGS (1)
  1. SKYRIZI [Suspect]
     Active Substance: RISANKIZUMAB-RZAA
     Indication: Psoriasis
     Route: 058
     Dates: start: 20220718

REACTIONS (8)
  - Cough [Recovering/Resolving]
  - Headache [Recovering/Resolving]
  - Psoriasis [Unknown]
  - Oropharyngeal pain [Recovering/Resolving]
  - Nausea [Unknown]
  - Feeling abnormal [Recovering/Resolving]
  - Pain [Unknown]
  - Unevaluable event [Recovering/Resolving]

NARRATIVE: CASE EVENT DATE: 20220802
